FAERS Safety Report 18913612 (Version 1)
Quarter: 2021Q1

REPORT INFORMATION
  Report Type: Spontaneous
  Country: US (occurrence: US)
  Receive Date: 20210218
  Receipt Date: 20210218
  Transmission Date: 20210420
  Serious: No
  Sender: FDA-Public Use
  Company Number: US-NOVOPROD-771527

PATIENT
  Age: 72 Year
  Sex: Male

DRUGS (1)
  1. VICTOZA [Suspect]
     Active Substance: LIRAGLUTIDE
     Indication: PRODUCT USED FOR UNKNOWN INDICATION
     Dosage: 1.8 MG, QD
     Route: 058
     Dates: start: 2015

REACTIONS (4)
  - Dizziness [Recovering/Resolving]
  - Headache [Not Recovered/Not Resolved]
  - Blood glucose increased [Recovering/Resolving]
  - Device malfunction [Recovered/Resolved]

NARRATIVE: CASE EVENT DATE: 20201127
